FAERS Safety Report 8496141-2 (Version None)
Quarter: 2012Q3

REPORT INFORMATION
  Report Type: 
  Country: None (occurrence: None)
  Receive Date: 20120709
  Receipt Date: 20120625
  Transmission Date: 20120928
  Serious: No
  Sender: FDA-Public Use
  Company Number: US-ASTRAZENECA-2012SE42636

PATIENT
  Age: 866 Month
  Sex: Female
  Weight: 67.1 kg

DRUGS (3)
  1. SYMBICORT [Suspect]
     Indication: BRONCHITIS
     Dosage: 160/4.5 MCG, TWO PUFFS TWO TIMES A DAY
     Route: 055
     Dates: start: 20081219
  2. SYMBICORT [Suspect]
     Indication: CHRONIC OBSTRUCTIVE PULMONARY DISEASE
     Dosage: 160/4.5 MCG, TWO PUFFS TWO TIMES A DAY
     Route: 055
     Dates: start: 20081219
  3. SPIRIVA [Concomitant]

REACTIONS (3)
  - COUGH [None]
  - NEUROPATHY PERIPHERAL [None]
  - VITAMIN B12 DEFICIENCY [None]
